FAERS Safety Report 5553627-8 (Version None)
Quarter: 2007Q4

REPORT INFORMATION
  Report Type: 
  Country: None (occurrence: None)
  Receive Date: 20071130
  Receipt Date: 20070810
  Transmission Date: 20080405
  Serious: Yes (Hospitalization)
  Sender: FDA-Public Use
  Company Number: US200708002523

PATIENT
  Age: 59 Year
  Sex: Female
  Weight: 115.6 kg

DRUGS (14)
  1. BYETTA [Suspect]
     Indication: TYPE 2 DIABETES MELLITUS
     Dosage: 5 UG, 2/D, SUBCUTANEOUS
     Route: 058
     Dates: start: 20061001
  2. .. [Concomitant]
  3. TENORMIN [Concomitant]
  4. LISINOPRIL [Concomitant]
  5. PREVACID [Concomitant]
  6. XALATAN [Concomitant]
  7. ATIVAN [Concomitant]
  8. FLOVENT [Concomitant]
  9. QUESTRAN LIGHT (COLESTYRAMINE) [Concomitant]
  10. DIFLUCAN [Concomitant]
  11. COMPAZINE (PROCHLORPERAZINE EDISYLATE) [Concomitant]
  12. VITAMIN E (HERBAL OIL NOS) [Concomitant]
  13. ALLEGRA [Concomitant]
  14. LUNESTA [Concomitant]

REACTIONS (7)
  - ABDOMINAL PAIN UPPER [None]
  - BLOOD AMYLASE INCREASED [None]
  - DYSPEPSIA [None]
  - LIPASE INCREASED [None]
  - PANCREATITIS [None]
  - VOMITING [None]
  - WEIGHT DECREASED [None]
